FAERS Safety Report 7237703-X (Version None)
Quarter: 2011Q1

REPORT INFORMATION
  Report Type: 
  Country: None (occurrence: None)
  Receive Date: 20110121
  Receipt Date: 20110111
  Transmission Date: 20110831
  Serious: Yes (Other)
  Sender: FDA-Public Use
  Company Number: PHHY2011US03051

PATIENT
  Sex: Female

DRUGS (1)
  1. EXTAVIA [Suspect]
     Indication: MULTIPLE SCLEROSIS
     Dosage: 0.25 MG, QOD
     Route: 058
     Dates: start: 20110110

REACTIONS (5)
  - TUNNEL VISION [None]
  - LOSS OF CONSCIOUSNESS [None]
  - PAIN [None]
  - COLD SWEAT [None]
  - BALANCE DISORDER [None]
